FAERS Safety Report 26143417 (Version 1)
Quarter: 2025Q4

REPORT INFORMATION
  Report Type: Spontaneous
  Country: US (occurrence: US)
  Receive Date: 20251211
  Receipt Date: 20251211
  Transmission Date: 20260118
  Serious: No
  Sender: CSL BEHRING
  Company Number: US-ROCHE-10000446164

PATIENT

DRUGS (1)
  1. MIRCERA [Suspect]
     Active Substance: METHOXY POLYETHYLENE GLYCOL-EPOETIN BETA
     Indication: Product used for unknown indication
     Dosage: 200 ?G
     Route: 065

REACTIONS (2)
  - Device dislocation [Unknown]
  - No adverse event [Unknown]
